FAERS Safety Report 18209609 (Version 1)
Quarter: 2020Q3

REPORT INFORMATION
  Report Type: Other
  Country: CA (occurrence: CA)
  Receive Date: 20200828
  Receipt Date: 20200828
  Transmission Date: 20201103
  Serious: Yes (Hospitalization, Other)
  Sender: FDA-Public Use
  Company Number: CA-COVIS PHARMA B.V.-2020COV00416

PATIENT
  Age: 35 Year
  Sex: Female

DRUGS (19)
  1. SALBUTAMOL [Suspect]
     Active Substance: ALBUTEROL
  2. AZITHROMYCIN ANHYDROUS. [Suspect]
     Active Substance: AZITHROMYCIN ANHYDROUS
     Dosage: 250 MG, 3X/DAY
  3. PREDNISONE. [Suspect]
     Active Substance: PREDNISONE
     Dosage: 15 MG, 1X/DAY
  4. BREO ELLIPTA [Suspect]
     Active Substance: FLUTICASONE FUROATE\VILANTEROL TRIFENATATE
     Route: 055
  5. METHYLPREDNISOLONE. [Suspect]
     Active Substance: METHYLPREDNISOLONE
  6. SOLU?MEDROL [Suspect]
     Active Substance: METHYLPREDNISOLONE SODIUM SUCCINATE
  7. BENRALIZUMAB. [Suspect]
     Active Substance: BENRALIZUMAB
     Route: 058
  8. SPIRIVA [Suspect]
     Active Substance: TIOTROPIUM BROMIDE MONOHYDRATE
     Dosage: 2 DF
  9. ADVAIR HFA [Suspect]
     Active Substance: FLUTICASONE PROPIONATE\SALMETEROL XINAFOATE
  10. ALVESCO [Suspect]
     Active Substance: CICLESONIDE
     Route: 055
  11. ERGOCALCIFEROL. [Suspect]
     Active Substance: ERGOCALCIFEROL
     Dosage: 1000 IU, 1X/WEEK
  12. NUCALA [Suspect]
     Active Substance: MEPOLIZUMAB
     Indication: ASTHMA
     Dosage: 100 MG
  13. SYMBICORT [Suspect]
     Active Substance: BUDESONIDE\FORMOTEROL FUMARATE DIHYDRATE
     Dosage: 2 DF, 2X/DAY
     Route: 055
  14. MONTELUKAST [Suspect]
     Active Substance: MONTELUKAST SODIUM
     Dosage: 10 MG, 1X/DAY
  15. OMALIZUMAB. [Suspect]
     Active Substance: OMALIZUMAB
  16. SINGULAIR [Suspect]
     Active Substance: MONTELUKAST SODIUM
     Dosage: 100 MG
  17. BENADRYL [Suspect]
     Active Substance: DIPHENHYDRAMINE HYDROCHLORIDE
     Indication: URTICARIA
     Dosage: UNK, AS NEEDED
  18. CETIRIZINE HYDROCHLORIDE/PSEUDOEPHEDRINE HYDROCHLORIDE [Suspect]
     Active Substance: CETIRIZINE HYDROCHLORIDE\PSEUDOEPHEDRINE HYDROCHLORIDE
     Indication: URTICARIA
     Dosage: 20 MG, 2X/DAY
  19. GLYCOPYRRONIUM BROMIDE [Suspect]
     Active Substance: GLYCOPYRRONIUM
     Dosage: 1 DF
     Route: 055

REACTIONS (25)
  - Asthenia [Unknown]
  - Feeling hot [Unknown]
  - Asthma [Unknown]
  - Cough [Unknown]
  - Increased bronchial secretion [Unknown]
  - Hyperventilation [Unknown]
  - Productive cough [Unknown]
  - Eosinophilia [Unknown]
  - Feeling abnormal [Unknown]
  - Rhinitis [Unknown]
  - Maternal exposure during pregnancy [Unknown]
  - Bronchial obstruction [Unknown]
  - Disease recurrence [Unknown]
  - Hypersensitivity [Unknown]
  - Nasal congestion [Unknown]
  - Chest discomfort [Unknown]
  - Middle insomnia [Unknown]
  - Dyspnoea [Unknown]
  - Nausea [Unknown]
  - Urticaria [Unknown]
  - Wheezing [Unknown]
  - Palpitations [Unknown]
  - Therapeutic product effect incomplete [Unknown]
  - Conjunctivitis [Unknown]
  - Dizziness [Unknown]
